FAERS Safety Report 9215654 (Version 1)
Quarter: 2013Q2

REPORT INFORMATION
  Report Type: Spontaneous
  Country: ZA (occurrence: None)
  Receive Date: 20130404
  Receipt Date: 20130404
  Transmission Date: 20140414
  Serious: Yes (Death, Other)
  Sender: FDA-Public Use
  Company Number: AUR-APL-2013-02617

PATIENT
  Age: 22 Year
  Sex: Female

DRUGS (3)
  1. NEVIRAPINE [Suspect]
     Indication: ANTIRETROVIRAL THERAPY
  2. LAMIVUDINE [Suspect]
     Indication: ANTIRETROVIRAL THERAPY
  3. TENOFOVIR [Suspect]
     Indication: ANTIRETROVIRAL THERAPY

REACTIONS (13)
  - Restlessness [None]
  - Jaundice [None]
  - Confusional state [None]
  - Foetal death [None]
  - Alanine aminotransferase increased [None]
  - Aspartate aminotransferase increased [None]
  - International normalised ratio increased [None]
  - Convulsion [None]
  - Cardio-respiratory arrest [None]
  - Blood glucose decreased [None]
  - Exposure during pregnancy [None]
  - Toxicity to various agents [None]
  - Postpartum haemorrhage [None]
